FAERS Safety Report 23111554 (Version 1)
Quarter: 2023Q4

REPORT INFORMATION
  Report Type: Report from Study
  Country: US (occurrence: US)
  Receive Date: 20231026
  Receipt Date: 20231026
  Transmission Date: 20240109
  Serious: Yes (Hospitalization)
  Sender: FDA-Public Use
  Company Number: US-MIRATI-MT2023PM05090

PATIENT
  Sex: Male

DRUGS (3)
  1. KRAZATI [Suspect]
     Active Substance: ADAGRASIB
     Indication: Product used for unknown indication
     Dosage: 400 MG, QD
     Route: 048
     Dates: start: 202309
  2. KRAZATI [Suspect]
     Active Substance: ADAGRASIB
     Dosage: 600 MG, BID
     Route: 048
     Dates: start: 20230807, end: 20230820
  3. KRAZATI [Suspect]
     Active Substance: ADAGRASIB
     Dosage: 200 MG, QD
     Route: 048
     Dates: start: 20230904, end: 202309

REACTIONS (1)
  - Hospitalisation [Recovering/Resolving]

NARRATIVE: CASE EVENT DATE: 20230901
